FAERS Safety Report 23527913 (Version 5)
Quarter: 2024Q2

REPORT INFORMATION
  Report Type: Spontaneous
  Country: US (occurrence: US)
  Receive Date: 20240215
  Receipt Date: 20240620
  Transmission Date: 20240715
  Serious: Yes (Other)
  Sender: FDA-Public Use
  Company Number: US-SA-SAC20240213000436

PATIENT
  Age: 64 Year
  Sex: Female
  Weight: 64 kg

DRUGS (10)
  1. CAPRELSA [Suspect]
     Active Substance: VANDETANIB
     Indication: Thyroid cancer
     Dosage: 300 MG, QD
     Route: 048
     Dates: start: 20230620
  2. SOLIFENACIN [Concomitant]
     Active Substance: SOLIFENACIN
     Dosage: UNK
  3. ELIQUIS [Concomitant]
     Active Substance: APIXABAN
     Dosage: UNK
  4. ATORVASTATIN [Concomitant]
     Active Substance: ATORVASTATIN
     Dosage: UNK
  5. METOPROLOL [Concomitant]
     Active Substance: METOPROLOL
     Dosage: UNK
  6. OMEPRAZOLE [Concomitant]
     Active Substance: DONEPEZIL HYDROCHLORIDE\OMEPRAZOLE\OMEPRAZOLE MAGNESIUM
     Dosage: UNK
  7. LOSARTAN [Concomitant]
     Active Substance: LOSARTAN
     Dosage: UNK
  8. CALCITRIOL [Concomitant]
     Active Substance: CALCITRIOL
     Dosage: UNK
  9. METFORMIN [Concomitant]
     Active Substance: METFORMIN HYDROCHLORIDE
     Dosage: UNK
  10. LEVOTHYROXINE [Concomitant]
     Active Substance: LEVOTHYROXINE\LEVOTHYROXINE SODIUM
     Dosage: UNK

REACTIONS (14)
  - Diabetes mellitus [Unknown]
  - Bronchitis chronic [Unknown]
  - Anosmia [Unknown]
  - Red blood cell count decreased [Unknown]
  - Ageusia [Unknown]
  - Dry skin [Unknown]
  - Blood pressure increased [Not Recovered/Not Resolved]
  - Fatigue [Unknown]
  - Dehydration [Unknown]
  - Pulmonary congestion [Unknown]
  - Nausea [Recovered/Resolved]
  - Vomiting [Recovered/Resolved]
  - Decreased appetite [Unknown]
  - Dyspnoea [Unknown]
